FAERS Safety Report 7046540-0 (Version None)
Quarter: 2010Q4

REPORT INFORMATION
  Report Type: 
  Country: None (occurrence: None)
  Receive Date: 20101015
  Receipt Date: 20101006
  Transmission Date: 20110411
  Serious: Yes (Hospitalization)
  Sender: FDA-Public Use
  Company Number: US-BIOGENIDEC-2010BI030220

PATIENT
  Age: 57 Year
  Sex: Female
  Weight: 66 kg

DRUGS (3)
  1. TYSABRI [Suspect]
     Indication: MULTIPLE SCLEROSIS
     Route: 042
     Dates: start: 20090224, end: 20100601
  2. TOPROL-XL [Concomitant]
     Indication: HYPERTENSION
     Dates: start: 20040101
  3. LISINOPRIL [Concomitant]
     Indication: HYPERTENSION
     Dates: start: 20040101

REACTIONS (3)
  - ANTIPHOSPHOLIPID ANTIBODIES [None]
  - MOBILITY DECREASED [None]
  - MULTIPLE SCLEROSIS [None]
